FAERS Safety Report 5980510-6 (Version None)
Quarter: 2008Q4

REPORT INFORMATION
  Report Type: 
  Country: None (occurrence: None)
  Receive Date: 20081205
  Receipt Date: 20080110
  Transmission Date: 20090506
  Serious: No
  Sender: FDA-Public Use
  Company Number: A0702339A

PATIENT
  Sex: Female

DRUGS (1)
  1. COMMIT [Suspect]

REACTIONS (1)
  - DRY MOUTH [None]
